FAERS Safety Report 25964865 (Version 3)
Quarter: 2025Q4

REPORT INFORMATION
  Report Type: Report from Study
  Country: US (occurrence: US)
  Receive Date: 20251027
  Receipt Date: 20251226
  Transmission Date: 20260117
  Serious: Yes (Other)
  Sender: ABBVIE
  Company Number: US-ABBVIE-6389422

PATIENT
  Age: 66 Year
  Sex: Male

DRUGS (2)
  1. SKYRIZI [Suspect]
     Active Substance: RISANKIZUMAB-RZAA
     Indication: Crohn^s disease
     Route: 058
  2. GLP-1 AGONISTS [Concomitant]
     Indication: Product used for unknown indication

REACTIONS (6)
  - Prostate cancer [Unknown]
  - Back injury [Unknown]
  - Crohn^s disease [Not Recovered/Not Resolved]
  - Stress [Unknown]
  - Skin disorder [Recovered/Resolved]
  - Back pain [Unknown]

NARRATIVE: CASE EVENT DATE: 20250101
